FAERS Safety Report 11965063 (Version 1)
Quarter: 2016Q1

REPORT INFORMATION
  Report Type: Spontaneous
  Country: FR (occurrence: FR)
  Receive Date: 20160127
  Receipt Date: 20160127
  Transmission Date: 20160526
  Serious: Yes (Other)
  Sender: FDA-Public Use
  Company Number: FR-BRISTOL-MYERS SQUIBB COMPANY-14154793

PATIENT
  Age: 38 Year
  Sex: Female

DRUGS (1)
  1. ABILIFY [Suspect]
     Active Substance: ARIPIPRAZOLE
     Indication: PRODUCT USED FOR UNKNOWN INDICATION
     Dosage: 10 MG, QD
     Route: 065
     Dates: start: 20061126, end: 20070301

REACTIONS (3)
  - Pregnancy on contraceptive [Recovered/Resolved]
  - Caesarean section [Unknown]
  - Live birth [Unknown]

NARRATIVE: CASE EVENT DATE: 20071201
